FAERS Safety Report 4995148-7 (Version None)
Quarter: 2006Q2

REPORT INFORMATION
  Report Type: 
  Country: None (occurrence: None)
  Receive Date: 20060503
  Receipt Date: 20060425
  Transmission Date: 20061013
  Serious: Yes (Other)
  Sender: FDA-Public Use
  Company Number: US200604000232

PATIENT
  Age: 9 Year
  Sex: Female

DRUGS (1)
  1. STRATTERA [Suspect]
     Indication: ATTENTION DEFICIT/HYPERACTIVITY DISORDER
     Dosage: 60 MG, DAILY (1/D)
     Dates: start: 20030301

REACTIONS (4)
  - GASTRIC ULCER [None]
  - GASTRITIS [None]
  - OESOPHAGEAL ULCER [None]
  - OESOPHAGITIS [None]
